FAERS Safety Report 19766106 (Version 1)
Quarter: 2021Q3

REPORT INFORMATION
  Report Type: Spontaneous
  Country: US (occurrence: US)
  Receive Date: 20210831
  Receipt Date: 20210831
  Transmission Date: 20211014
  Serious: No
  Sender: FDA-Public Use
  Company Number: US-DRREDDYS-SPO/USA/21/0139178

PATIENT
  Age: 80 Year
  Sex: Female
  Weight: 86.4 kg

DRUGS (2)
  1. OXYCODONE [Concomitant]
     Active Substance: OXYCODONE
     Indication: PRODUCT USED FOR UNKNOWN INDICATION
  2. MYOFLEX [Suspect]
     Active Substance: TROLAMINE SALICYLATE
     Indication: PAIN
     Dates: start: 202108, end: 20210815

REACTIONS (2)
  - Product administration error [Unknown]
  - Application site pain [Unknown]
